FAERS Safety Report 16281275 (Version 2)
Quarter: 2022Q1

REPORT INFORMATION
  Report Type: Report from Study
  Country: TW (occurrence: TW)
  Receive Date: 20190507
  Receipt Date: 20220302
  Transmission Date: 20220423
  Serious: Yes (Hospitalization, Other)
  Sender: FDA-Public Use
  Company Number: TW-BAYER-2019-086745

PATIENT
  Age: 68 Year
  Sex: Female
  Weight: 57.7 kg

DRUGS (2)
  1. RIVAROXABAN [Suspect]
     Active Substance: RIVAROXABAN
     Indication: Atrial fibrillation
     Dosage: 10 MG, QD
     Route: 048
  2. RIVAROXABAN [Suspect]
     Active Substance: RIVAROXABAN
     Indication: Cerebrovascular accident prophylaxis
     Route: 048

REACTIONS (6)
  - Cardiac failure [Unknown]
  - Infection [Unknown]
  - Pericardial haemorrhage [Unknown]
  - Pericardial haemorrhage [Unknown]
  - Renal impairment [Unknown]
  - Incorrect dose administered [Unknown]
